FAERS Safety Report 4844180-2 (Version None)
Quarter: 2005Q4

REPORT INFORMATION
  Report Type: 
  Country: None (occurrence: None)
  Receive Date: 20051202
  Receipt Date: 20051123
  Transmission Date: 20060501
  Serious: Yes (Hospitalization, Other)
  Sender: FDA-Public Use
  Company Number: PHBS2005US17450

PATIENT
  Age: 8 Year
  Sex: Female

DRUGS (15)
  1. CYCLOSPORINE [Suspect]
     Indication: CORD BLOOD TRANSPLANT THERAPY
     Route: 042
  2. MYCOPHENOLATE MOFETIL [Concomitant]
  3. CYCLOSPORINE [Suspect]
     Route: 048
  4. MELPHALAN [Concomitant]
     Dosage: 60 MG/M2/DOSE DAILY
  5. ANTIBIOTICS [Concomitant]
  6. VORICONAZOLE [Concomitant]
  7. FLUCONAZOLE [Concomitant]
  8. SULFAMETHOXAZOLE + TRIMETHOPRIM [Concomitant]
  9. ETOPOSIDE [Concomitant]
     Dosage: 400 MG/M2/DOSE DAILY
  10. IRRADIATION [Concomitant]
     Dosage: 500 CGY IN TWO FRACTIONS
  11. ANTITHYMOCYTE IMMUNOGLOBULIN [Concomitant]
     Dosage: 30 MG/KG/ DAY
  12. G-CSF [Concomitant]
  13. NORMAL HUMAN IMMUNOGLOBULIN [Concomitant]
     Dosage: 250 MG/KG/WEEKLY FOR 1 MONTH
     Route: 042
  14. NORMAL HUMAN IMMUNOGLOBULIN [Concomitant]
     Dosage: 500 MG/KG EVERY 3 WEEKS
     Route: 042
  15. PREDNISONE [Concomitant]

REACTIONS (21)
  - ABDOMINAL DISTENSION [None]
  - ABDOMINAL PAIN [None]
  - ABNORMAL FAECES [None]
  - ASCITES [None]
  - BLOOD BILIRUBIN INCREASED [None]
  - BLOOD CREATININE INCREASED [None]
  - BLOOD UREA INCREASED [None]
  - CAPILLARY LEAK SYNDROME [None]
  - CHOLECYSTITIS ACUTE [None]
  - CLOSTRIDIUM COLITIS [None]
  - GENERALISED OEDEMA [None]
  - GRAFT VERSUS HOST DISEASE [None]
  - HEPATOMEGALY [None]
  - LIFE SUPPORT [None]
  - ORAL PAIN [None]
  - PSEUDOMONAS INFECTION [None]
  - RENAL FAILURE [None]
  - STAPHYLOCOCCAL BACTERAEMIA [None]
  - STOMATITIS [None]
  - TRACHEITIS [None]
  - VENOOCCLUSIVE LIVER DISEASE [None]
